FAERS Safety Report 15879255 (Version 1)
Quarter: 2019Q1

REPORT INFORMATION
  Report Type: Spontaneous
  Country: CA (occurrence: CA)
  Receive Date: 20190128
  Receipt Date: 20190128
  Transmission Date: 20190417
  Serious: Yes (Disabling, Other)
  Sender: FDA-Public Use
  Company Number: CA-MYLANLABS-2019M1006639

PATIENT
  Age: 58 Year
  Sex: Female

DRUGS (7)
  1. ESTRADIOL. [Suspect]
     Active Substance: ESTRADIOL
     Indication: HORMONE REPLACEMENT THERAPY
     Dosage: 2 PUMPS, QD (ON SAME EXTREMITY)
     Route: 061
  2. METFORMIN [Concomitant]
     Active Substance: METFORMIN HYDROCHLORIDE
     Indication: PRODUCT USED FOR UNKNOWN INDICATION
  3. PROMETRIUM [Suspect]
     Active Substance: PROGESTERONE
     Indication: MENOPAUSAL SYMPTOMS
     Dosage: 200 MILLIGRAM, NIGHTLY AT BED TIME (QHS)
     Route: 048
  4. PROMETRIUM [Suspect]
     Active Substance: PROGESTERONE
     Indication: HORMONE REPLACEMENT THERAPY
     Dosage: 100 MILLIGRAM, QD (OHS)
     Route: 048
     Dates: start: 201306, end: 201306
  5. PROMETRIUM [Suspect]
     Active Substance: PROGESTERONE
     Dosage: 200 MG, QD FROM 8 TO 21 (2 CAPSULES) AND THEN LOOMG FOR OTHER 2 WEEKS
     Route: 048
  6. PREMARIN [Suspect]
     Active Substance: ESTROGENS, CONJUGATED
     Indication: PRODUCT USED FOR UNKNOWN INDICATION
     Dosage: UNK
     Dates: start: 201511, end: 201511
  7. ESTRADIOL. [Suspect]
     Active Substance: ESTRADIOL
     Indication: MENOPAUSAL SYMPTOMS
     Dosage: 1.25 MILLIGRAM
     Route: 061
     Dates: start: 201602

REACTIONS (13)
  - Eye pain [Not Recovered/Not Resolved]
  - Disturbance in attention [Recovering/Resolving]
  - Migraine [Not Recovered/Not Resolved]
  - Seizure [Recovering/Resolving]
  - Malaise [Unknown]
  - Movement disorder [Unknown]
  - Epilepsy [Unknown]
  - Weight decreased [Unknown]
  - Memory impairment [Unknown]
  - Drug hypersensitivity [Unknown]
  - Urinary tract infection bacterial [Unknown]
  - Diarrhoea [Recovering/Resolving]
  - Off label use [Unknown]

NARRATIVE: CASE EVENT DATE: 2011
